FAERS Safety Report 7772413-1 (Version None)
Quarter: 2011Q3

REPORT INFORMATION
  Report Type: 
  Country: None (occurrence: None)
  Receive Date: 20110922
  Receipt Date: 20101201
  Transmission Date: 20111222
  Serious: No
  Sender: FDA-Public Use
  Company Number: US-ASTRAZENECA-2010SE56997

PATIENT
  Age: 352 Month
  Sex: Female
  Weight: 79.4 kg

DRUGS (4)
  1. SEROQUEL XR [Suspect]
     Indication: POST-TRAUMATIC STRESS DISORDER
     Route: 048
     Dates: start: 20101001
  2. SEROQUEL XR [Suspect]
     Indication: SCHIZOPHRENIA
     Route: 048
     Dates: start: 20101001
  3. SEROQUEL XR [Suspect]
     Indication: BIPOLAR DISORDER
     Route: 048
     Dates: start: 20101001
  4. DEMEROL [Concomitant]

REACTIONS (4)
  - HYPERSOMNIA [None]
  - AGGRESSION [None]
  - HALLUCINATIONS, MIXED [None]
  - DRUG INEFFECTIVE [None]
